FAERS Safety Report 12770475 (Version 1)
Quarter: 2016Q3

REPORT INFORMATION
  Report Type: Spontaneous
  Country: TW (occurrence: TW)
  Receive Date: 20160922
  Receipt Date: 20160922
  Transmission Date: 20161109
  Serious: Yes (Hospitalization)
  Sender: FDA-Public Use
  Company Number: TW-ASTRAZENECA-2016SE97430

PATIENT
  Age: 20126 Day
  Sex: Male

DRUGS (6)
  1. FORXIGA [Suspect]
     Active Substance: DAPAGLIFLOZIN
     Route: 048
     Dates: start: 20160627
  2. DIOVAN [Concomitant]
     Active Substance: VALSARTAN
     Dates: start: 20160324
  3. AMARYL [Concomitant]
     Active Substance: GLIMEPIRIDE
     Dosage: 4.0UG UNKNOWN
     Dates: start: 20160324
  4. MEGLUCON [Concomitant]
     Dosage: 850, TWO TIMES A DAY
     Dates: start: 20160627
  5. XANAX [Concomitant]
     Active Substance: ALPRAZOLAM
     Dates: start: 20160324
  6. ASPIRIN. [Concomitant]
     Active Substance: ASPIRIN
     Dates: start: 20160324

REACTIONS (3)
  - Acute kidney injury [Recovered/Resolved]
  - Hypovolaemic shock [Recovered/Resolved]
  - Diarrhoea [Unknown]

NARRATIVE: CASE EVENT DATE: 20160816
